FAERS Safety Report 6558416-3 (Version None)
Quarter: 2010Q1

REPORT INFORMATION
  Report Type: 
  Country: None (occurrence: None)
  Receive Date: 20100128
  Receipt Date: 20100128
  Transmission Date: 20100710
  Serious: No
  Sender: FDA-Public Use
  Company Number: None

PATIENT
  Age: 51 Year
  Sex: Female
  Weight: 59.8748 kg

DRUGS (1)
  1. LEVAQUIN [Suspect]
     Indication: PERTUSSIS
     Dosage: 750 MG ONCE A DAY FOR 8 D PO
     Route: 048
     Dates: start: 20090319, end: 20090326

REACTIONS (8)
  - FATIGUE [None]
  - FEELING ABNORMAL [None]
  - HALLUCINATION [None]
  - INSOMNIA [None]
  - NERVE INJURY [None]
  - NERVOUS SYSTEM DISORDER [None]
  - SOFT TISSUE DISORDER [None]
  - TENDON PAIN [None]
